FAERS Safety Report 4626965-0 (Version None)
Quarter: 2005Q1

REPORT INFORMATION
  Report Type: 
  Country: None (occurrence: None)
  Receive Date: 20050331
  Receipt Date: 20050323
  Transmission Date: 20050727
  Serious: Yes (Hospitalization)
  Sender: FDA-Public Use
  Company Number: OMPQ-NO-0503S-0634

PATIENT
  Age: 78 Year
  Sex: Male
  Weight: 46 kg

DRUGS (3)
  1. OMNIPAQUE 140 [Suspect]
     Indication: ANGINA PECTORIS
     Dosage: 100 ML SINGLE DOSE IA
     Route: 013
     Dates: start: 20050303, end: 20050303
  2. IOPAMIDOL [Concomitant]
  3. HEPARIN [Concomitant]

REACTIONS (2)
  - PLATELET COUNT DECREASED [None]
  - POST PROCEDURAL COMPLICATION [None]
